FAERS Safety Report 8998628 (Version 2)
Quarter: 2014Q1

REPORT INFORMATION
  Report Type: Report from Study
  Country: MX (occurrence: MX)
  Receive Date: 20130103
  Receipt Date: 20140213
  Transmission Date: 20141002
  Serious: Yes (Other)
  Sender: FDA-Public Use
  Company Number: PHHY2013MX000987

PATIENT
  Age: 82 Year
  Sex: Male

DRUGS (8)
  1. EXELON PATCH [Suspect]
     Indication: DEMENTIA ALZHEIMER^S TYPE
     Dosage: 4.6 MG, DAILY
     Route: 062
     Dates: start: 201001
  2. EXELON PATCH [Suspect]
     Dosage: 9.5 MG, DAILY
     Route: 062
     Dates: start: 201002
  3. EXELON PATCH [Suspect]
     Dosage: UNK UKN, UNK
     Route: 062
     Dates: start: 2011
  4. EXFORGE [Suspect]
     Indication: HYPERTENSION
     Dosage: 1 DF DAILY
     Route: 048
  5. EXFORGE [Suspect]
     Dosage: 0.5 DF, DAILY
     Route: 048
  6. KEPPRA [Concomitant]
     Indication: CONVULSION
     Dosage: 2 DF DAILY
  7. ULSEN//OMEPRAZOLE [Concomitant]
     Dosage: 1 DF DAILY
  8. ASPIRINA [Concomitant]
     Indication: PAIN
     Dosage: UNK UKN, 1 DAILY

REACTIONS (4)
  - Embolism [Recovered/Resolved]
  - Leukaemia [Not Recovered/Not Resolved]
  - Wrong technique in drug usage process [Not Recovered/Not Resolved]
  - Hypertension [Unknown]
